FAERS Safety Report 5611419-5 (Version None)
Quarter: 2008Q1

REPORT INFORMATION
  Report Type: 
  Country: None (occurrence: None)
  Receive Date: 20080201
  Receipt Date: 20080122
  Transmission Date: 20080703
  Serious: Yes (Hospitalization)
  Sender: FDA-Public Use
  Company Number: DE-ABBOTT-07P-062-0420274-00

PATIENT
  Sex: Female
  Weight: 29.8 kg

DRUGS (6)
  1. ERGENYL CHRONO GRANULE [Suspect]
     Indication: PETIT MAL EPILEPSY
     Route: 048
     Dates: start: 20070727, end: 20070809
  2. ERGENYL CHRONO GRANULE [Suspect]
     Route: 048
     Dates: start: 20070723, end: 20070726
  3. ERGENYL CHRONO GRANULE [Suspect]
     Dates: start: 20070720, end: 20070724
  4. ERGENYL CHRONO GRANULE [Suspect]
     Dosage: 10MG/KG BODY WEIGHT
     Route: 048
     Dates: start: 20070720, end: 20070722
  5. ERGENYL CHRONO GRANULE [Suspect]
     Dosage: 17MG/KG BODY WEIGHT
     Route: 048
     Dates: start: 20070723, end: 20070726
  6. ERGENYL CHRONO GRANULE [Suspect]
     Route: 048
     Dates: start: 20070727, end: 20070809

REACTIONS (19)
  - ADVERSE DRUG REACTION [None]
  - ANAEMIA [None]
  - ASCITES [None]
  - BLOOD PRESSURE INCREASED [None]
  - COMPLEMENT FACTOR C3 DECREASED [None]
  - DYSPNOEA [None]
  - HAEMATOCHEZIA [None]
  - HYPOALBUMINAEMIA [None]
  - INTERSTITIAL LUNG DISEASE [None]
  - NEPHRITIS INTERSTITIAL [None]
  - OEDEMA PERIPHERAL [None]
  - PERICARDIAL EFFUSION [None]
  - PHARYNGITIS [None]
  - POST STREPTOCOCCAL GLOMERULONEPHRITIS [None]
  - PROTEIN TOTAL DECREASED [None]
  - RASH [None]
  - ULTRASOUND SCAN ABNORMAL [None]
  - WAIST CIRCUMFERENCE INCREASED [None]
  - WEIGHT INCREASED [None]
